FAERS Safety Report 18344619 (Version 1)
Quarter: 2020Q4

REPORT INFORMATION
  Report Type: Spontaneous
  Country: US (occurrence: US)
  Receive Date: 20201005
  Receipt Date: 20201005
  Transmission Date: 20210114
  Serious: No
  Sender: FDA-Public Use
  Company Number: None

PATIENT
  Age: 26 Year
  Sex: Female
  Weight: 68.85 kg

DRUGS (8)
  1. WELLBUTRIN XL [Concomitant]
     Active Substance: BUPROPION HYDROCHLORIDE
  2. VITAMIN B-12 AND B-COMPLEX [Concomitant]
  3. ZINC. [Concomitant]
     Active Substance: ZINC
  4. GINKO BILOBA [Concomitant]
     Active Substance: GINKGO
  5. ELURYNG [Suspect]
     Active Substance: ETHINYL ESTRADIOL\ETONOGESTREL
     Indication: CONTRACEPTION
  6. ELURYNG [Suspect]
     Active Substance: ETHINYL ESTRADIOL\ETONOGESTREL
     Indication: MENSTRUATION IRREGULAR
  7. SERTRALINE 50 MG [Concomitant]
     Active Substance: SERTRALINE HYDROCHLORIDE
  8. VITAMIN C [Concomitant]
     Active Substance: ASCORBIC ACID

REACTIONS (5)
  - Product substitution issue [None]
  - Fatigue [None]
  - Dizziness [None]
  - Menstruation irregular [None]
  - Menorrhagia [None]

NARRATIVE: CASE EVENT DATE: 20200926
